FAERS Safety Report 6002538-2 (Version None)
Quarter: 2008Q4

REPORT INFORMATION
  Report Type: 
  Country: None (occurrence: None)
  Receive Date: 20081215
  Receipt Date: 20071121
  Transmission Date: 20090506
  Serious: No
  Sender: FDA-Public Use
  Company Number: US-AMGEN-KDL253760

PATIENT
  Sex: Female

DRUGS (1)
  1. ENBREL [Suspect]
     Indication: RHEUMATOID ARTHRITIS
     Route: 058
     Dates: start: 20061101

REACTIONS (8)
  - BACK PAIN [None]
  - FLANK PAIN [None]
  - HEADACHE [None]
  - NASAL CONGESTION [None]
  - PAIN [None]
  - PYREXIA [None]
  - SINUSITIS [None]
  - URINARY TRACT INFECTION [None]
